FAERS Safety Report 5443073-X (Version None)
Quarter: 2007Q3

REPORT INFORMATION
  Report Type: 
  Country: None (occurrence: None)
  Receive Date: 20070905
  Receipt Date: 20070829
  Transmission Date: 20080115
  Serious: Yes (Other)
  Sender: FDA-Public Use
  Company Number: US-ASTRAZENECA-2007UW16314

PATIENT
  Age: 30 Year
  Sex: Female

DRUGS (4)
  1. ZOLADEX [Suspect]
     Indication: ENDOMETRIOSIS
     Route: 058
     Dates: start: 20070101
  2. NUVARING [Concomitant]
  3. EFFEXOR [Concomitant]
  4. AMITRIPTYLINE HCL [Concomitant]

REACTIONS (7)
  - AFFECTIVE DISORDER [None]
  - ANOREXIA NERVOSA [None]
  - ANXIETY DISORDER [None]
  - HAIR GROWTH ABNORMAL [None]
  - OSTEOPENIA [None]
  - PAIN [None]
  - RIB FRACTURE [None]
